FAERS Safety Report 5844677-2 (Version None)
Quarter: 2008Q3

REPORT INFORMATION
  Report Type: 
  Country: None (occurrence: None)
  Receive Date: 20080814
  Receipt Date: 20080731
  Transmission Date: 20090109
  Serious: Yes (Other)
  Sender: FDA-Public Use
  Company Number: GB-BAUSCH-2008BL003335

PATIENT
  Age: 79 Year
  Sex: Male

DRUGS (18)
  1. PHENYLEPHRINE [Suspect]
     Route: 047
     Dates: start: 20080319, end: 20080319
  2. ADRENALINE [Suspect]
     Route: 031
     Dates: start: 20080319, end: 20080319
  3. CEFUROXIME [Suspect]
     Route: 031
     Dates: start: 20080319, end: 20080319
  4. HYALURONATE SODIUM [Suspect]
     Route: 031
     Dates: start: 20080319, end: 20080319
  5. BALANCED SALT [Suspect]
     Route: 031
     Dates: start: 20080319, end: 20080319
  6. ASPIRIN [Concomitant]
     Route: 048
  7. ATENOLOL [Concomitant]
     Route: 048
  8. CYCLOPENTOLATE HCL [Concomitant]
     Indication: CYCLOPLEGIA
     Route: 047
     Dates: start: 20080319, end: 20080319
  9. DIAMOX /CAN/ [Concomitant]
     Dates: start: 20080319, end: 20080319
  10. GLICLAZIDE [Concomitant]
     Route: 048
  11. HYALASE [Concomitant]
     Indication: LOCAL ANAESTHESIA
     Dates: start: 20080319, end: 20080319
  12. LIGNOCAINE [Concomitant]
     Indication: LOCAL ANAESTHESIA
     Dates: start: 20080319, end: 20080319
  13. MAXITROL /INO/ [Concomitant]
     Route: 047
     Dates: start: 20080319
  14. METFORMIN HCL [Concomitant]
     Route: 048
  15. POVIDONE IODINE [Concomitant]
     Route: 061
     Dates: start: 20080319, end: 20080319
  16. RAMIPRIL [Concomitant]
     Route: 048
  17. SIMVASTATIN [Concomitant]
     Route: 048
  18. VOLTAREN [Concomitant]
     Route: 047
     Dates: start: 20080319, end: 20080319

REACTIONS (2)
  - BLINDNESS [None]
  - RETINAL DISORDER [None]
